FAERS Safety Report 6062215-9 (Version None)
Quarter: 2009Q1

REPORT INFORMATION
  Report Type: 
  Country: None (occurrence: None)
  Receive Date: 20090203
  Receipt Date: 20090129
  Transmission Date: 20090719
  Serious: Yes (Other)
  Sender: FDA-Public Use
  Company Number: CA-ASTRAZENECA-2009UW02792

PATIENT
  Age: 62 Year
  Sex: Male

DRUGS (2)
  1. CRESTOR [Suspect]
     Route: 048
     Dates: start: 20090116
  2. EYE DROPS [Concomitant]
     Indication: GLAUCOMA

REACTIONS (1)
  - RECTAL HAEMORRHAGE [None]
